FAERS Safety Report 25893830 (Version 5)
Quarter: 2025Q4

REPORT INFORMATION
  Report Type: Report from Study
  Country: US (occurrence: US)
  Receive Date: 20251008
  Receipt Date: 20251230
  Transmission Date: 20260118
  Serious: Yes (Other)
  Sender: ABBVIE
  Company Number: US-ABBVIE-6490690

PATIENT
  Age: 80 Year
  Sex: Male

DRUGS (5)
  1. VENCLEXTA [Suspect]
     Active Substance: VENETOCLAX
     Indication: Chronic lymphocytic leukaemia
     Route: 048
     Dates: start: 202509, end: 202509
  2. VENCLEXTA [Suspect]
     Active Substance: VENETOCLAX
     Indication: Chronic lymphocytic leukaemia
     Route: 048
     Dates: start: 202509, end: 202509
  3. VENCLEXTA [Suspect]
     Active Substance: VENETOCLAX
     Indication: Chronic lymphocytic leukaemia
     Route: 048
     Dates: start: 20251010
  4. RITUXIMAB [Suspect]
     Active Substance: RITUXIMAB
     Indication: Product used for unknown indication
     Route: 065
  5. ALLOPURINOL [Concomitant]
     Active Substance: ALLOPURINOL
     Indication: Product used for unknown indication
     Dosage: TAKING 300 OR 400 MG TWICE A DAY

REACTIONS (25)
  - Cataract [Recovering/Resolving]
  - Vagus nerve disorder [Unknown]
  - White blood cell count decreased [Not Recovered/Not Resolved]
  - Tumour lysis syndrome [Recovering/Resolving]
  - White blood cell count increased [Recovered/Resolved]
  - Osteoarthritis [Unknown]
  - Benign prostatic hyperplasia [Unknown]
  - Haemoglobin decreased [Unknown]
  - Platelet count decreased [Not Recovered/Not Resolved]
  - Haematocrit decreased [Unknown]
  - Red blood cell count decreased [Unknown]
  - Lymphocyte count decreased [Unknown]
  - Fatigue [Unknown]
  - Decreased appetite [Unknown]
  - Weight decreased [Unknown]
  - Chronic lymphocytic leukaemia recurrent [Unknown]
  - Fall [Recovered/Resolved]
  - Fall [Unknown]
  - Head injury [Unknown]
  - Depression [Unknown]
  - Gait disturbance [Unknown]
  - Dizziness [Unknown]
  - Platelet count abnormal [Unknown]
  - Splenomegaly [Recovering/Resolving]
  - Sinusitis [Unknown]

NARRATIVE: CASE EVENT DATE: 20250101
